FAERS Safety Report 5750109-5 (Version None)
Quarter: 2008Q2

REPORT INFORMATION
  Report Type: 
  Country: None (occurrence: None)
  Receive Date: 20080522
  Receipt Date: 20080522
  Transmission Date: 20081010
  Serious: No
  Sender: FDA-Public Use
  Company Number: None

PATIENT
  Sex: Male
  Weight: 80 kg

DRUGS (3)
  1. CYTARABINE [Suspect]
     Dosage: 30080 MG
     Dates: end: 20080224
  2. ETOPOSIDE [Suspect]
     Dosage: 3159 MG
     Dates: end: 20080224
  3. RITUXIMAB (MOAB C2B8 ANTI CD20, CHIMERIC) [Suspect]
     Dosage: 1400 MG
     Dates: end: 20080303

REACTIONS (1)
  - HAEMOGLOBIN DECREASED [None]
